FAERS Safety Report 14225536 (Version 1)
Quarter: 2017Q4

REPORT INFORMATION
  Report Type: Spontaneous
  Country: US (occurrence: None)
  Receive Date: 20171123
  Receipt Date: 20171123
  Transmission Date: 20180321
  Serious: No
  Sender: FDA-Public Use
  Company Number: None

PATIENT
  Age: 63 Year
  Sex: Male

DRUGS (1)
  1. HARVONI [Suspect]
     Active Substance: LEDIPASVIR\SOFOSBUVIR

REACTIONS (5)
  - Eyelid margin crusting [None]
  - Eye pain [None]
  - Sleep disorder [None]
  - Wrong schedule [None]
  - Lacrimation increased [None]

NARRATIVE: CASE EVENT DATE: 20171119
